FAERS Safety Report 17125398 (Version 1)
Quarter: 2019Q4

REPORT INFORMATION
  Report Type: Spontaneous
  Country: IT (occurrence: IT)
  Receive Date: 20191207
  Receipt Date: 20191207
  Transmission Date: 20200122
  Serious: Yes (Other)
  Sender: FDA-Public Use
  Company Number: IT-AUROBINDO-AUR-APL-2019-064573

PATIENT
  Age: 19 Year
  Sex: Female

DRUGS (4)
  1. QUETIAPINE. [Suspect]
     Active Substance: QUETIAPINE
     Indication: PRODUCT USED FOR UNKNOWN INDICATION
     Dosage: 6 DOSAGE FORM, TOTAL
     Route: 048
     Dates: start: 20190916
  2. LEXOTAN [Suspect]
     Active Substance: BROMAZEPAM
     Indication: PRODUCT USED FOR UNKNOWN INDICATION
     Dosage: 13 MILLIGRAM, TOTAL
     Route: 048
     Dates: start: 20190916
  3. PAROXETINE. [Concomitant]
     Active Substance: PAROXETINE
     Indication: PRODUCT USED FOR UNKNOWN INDICATION
     Dosage: 10 MILLIGRAM
     Route: 048
  4. LORAZEPAM. [Suspect]
     Active Substance: LORAZEPAM
     Indication: PRODUCT USED FOR UNKNOWN INDICATION
     Dosage: 13.5 MILLIGRAM, TOTAL
     Route: 048
     Dates: start: 20190916

REACTIONS (2)
  - Agitation [Recovering/Resolving]
  - Drug abuse [Recovering/Resolving]

NARRATIVE: CASE EVENT DATE: 20190916
